FAERS Safety Report 5646523-9 (Version None)
Quarter: 2008Q1

REPORT INFORMATION
  Report Type: 
  Country: None (occurrence: None)
  Receive Date: 20080227
  Receipt Date: 20080217
  Transmission Date: 20080703
  Serious: Yes (Other)
  Sender: FDA-Public Use
  Company Number: 2008SP003480

PATIENT
  Age: 28 Year
  Sex: Male
  Weight: 60 kg

DRUGS (2)
  1. PEG-INTRON [Suspect]
     Indication: HEPATITIS C VIRUS
     Dosage: 80 MCG; SC
     Route: 058
     Dates: start: 20070906
  2. NALTREXON (CON.) [Concomitant]

REACTIONS (5)
  - CYANOSIS [None]
  - HYPOTONIA [None]
  - PALLOR [None]
  - PRURITUS GENERALISED [None]
  - TINEA VERSICOLOUR [None]
